FAERS Safety Report 8003186-5 (Version None)
Quarter: 2011Q4

REPORT INFORMATION
  Report Type: 
  Country: None (occurrence: None)
  Receive Date: 20111222
  Receipt Date: 20111216
  Transmission Date: 20120403
  Serious: Yes (Other)
  Sender: FDA-Public Use
  Company Number: DE-TEVA-314018GER

PATIENT
  Sex: Female
  Weight: 64 kg

DRUGS (1)
  1. COPAXONE [Suspect]
     Indication: MULTIPLE SCLEROSIS
     Route: 058
     Dates: start: 20111115, end: 20111212

REACTIONS (2)
  - INFLAMMATORY MARKER INCREASED [None]
  - COUGH [None]
